FAERS Safety Report 21006550 (Version 1)
Quarter: 2022Q2

REPORT INFORMATION
  Report Type: Report from Study
  Country: US (occurrence: US)
  Receive Date: 20220624
  Receipt Date: 20220624
  Transmission Date: 20220721
  Serious: Yes (Other)
  Sender: FDA-Public Use
  Company Number: US-BRISTOL-MYERS SQUIBB COMPANY-2022-062407

PATIENT
  Age: 70 Year
  Sex: Male

DRUGS (4)
  1. NIVOLUMAB [Suspect]
     Active Substance: NIVOLUMAB
     Indication: Malignant melanoma
     Dosage: FOUR TIMES IN A 12-WEEK INDUCTION CYCLE
     Route: 065
  2. NIVOLUMAB [Suspect]
     Active Substance: NIVOLUMAB
     Dosage: MAINTENANCE
     Route: 065
  3. IPILIMUMAB [Suspect]
     Active Substance: IPILIMUMAB
     Indication: Malignant melanoma
     Dosage: FOUR TIMES IN A 12-WEEK INDUCTION CYCLE
     Route: 065
  4. MOCETINOSTAT [Suspect]
     Active Substance: MOCETINOSTAT
     Indication: Malignant melanoma
     Dosage: 12-WEEK INDUCTION CYCLE
     Route: 048

REACTIONS (7)
  - Dyspepsia [Unknown]
  - Vomiting [Unknown]
  - Diarrhoea [Unknown]
  - Pruritus allergic [Unknown]
  - Dehydration [Unknown]
  - Immune-mediated dermatitis [Unknown]
  - Intentional product use issue [Unknown]
